FAERS Safety Report 5285749-3 (Version None)
Quarter: 2007Q1

REPORT INFORMATION
  Report Type: 
  Country: None (occurrence: None)
  Receive Date: 20070126
  Receipt Date: 20061117
  Transmission Date: 20070707
  Serious: No
  Sender: FDA-Public Use
  Company Number: 2007CT000022

PATIENT
  Age: 45 Year
  Sex: Female
  Weight: 127.4608 kg

DRUGS (10)
  1. VENTAVIS [Suspect]
     Indication: PULMONARY HYPERTENSION
     Dosage: 5 UG;6TO9X/DAY;INH
     Route: 055
     Dates: start: 20060629
  2. METOLAZONE [Concomitant]
  3. BENAZEPRIL HYDROCHLORIDE [Concomitant]
  4. SYNTHROID [Concomitant]
  5. WARFARIN SODIUM [Concomitant]
  6. FUROSEMIDE [Concomitant]
  7. DIGOXIN [Concomitant]
  8. K-DUR 10 [Concomitant]
  9. MAGNESIUM OXIDE [Concomitant]
  10. IPRATROPIUM BROMIDE/SALBUTAMOL SULFATE [Concomitant]

REACTIONS (1)
  - THROAT IRRITATION [None]
